FAERS Safety Report 14689615 (Version 3)
Quarter: 2018Q2

REPORT INFORMATION
  Report Type: Spontaneous
  Country: US (occurrence: US)
  Receive Date: 20180328
  Receipt Date: 20180530
  Transmission Date: 20180711
  Serious: Yes (Hospitalization)
  Sender: FDA-Public Use
  Company Number: US-CELGENEUS-USA-20180307621

PATIENT
  Age: 73 Year
  Sex: Male
  Weight: 81.72 kg

DRUGS (2)
  1. REVLIMID [Suspect]
     Active Substance: LENALIDOMIDE
     Indication: B-CELL SMALL LYMPHOCYTIC LYMPHOMA
     Dosage: 25 MILLIGRAM
     Route: 048
     Dates: start: 201803
  2. REVLIMID [Suspect]
     Active Substance: LENALIDOMIDE
     Indication: WALDENSTROM^S MACROGLOBULINAEMIA

REACTIONS (8)
  - Hypotension [Not Recovered/Not Resolved]
  - Pathogen resistance [Recovered/Resolved]
  - Infection [Not Recovered/Not Resolved]
  - Fall [Recovered/Resolved]
  - Cholangitis infective [Not Recovered/Not Resolved]
  - Pneumonia [Recovered/Resolved]
  - Body temperature increased [Not Recovered/Not Resolved]
  - Head injury [Recovered/Resolved]

NARRATIVE: CASE EVENT DATE: 20180318
